FAERS Safety Report 9506257 (Version 1)
Quarter: 2013Q1

REPORT INFORMATION
  Report Type: Spontaneous
  Country: US (occurrence: None)
  Receive Date: 20130305
  Receipt Date: 20130305
  Transmission Date: 20140127
  Serious: Yes (Hospitalization, Other)
  Sender: FDA-Public Use
  Company Number: 163-21880-12050179

PATIENT
  Age: 63 Year
  Sex: Female

DRUGS (1)
  1. REVLIMID (LENALIDOMIDE) (CAPSULES) [Suspect]
     Dosage: 10 MG, ONCE DAILY ON MONDAY THRU FRIDAY, PO
     Route: 048
     Dates: start: 20110524

REACTIONS (2)
  - Pneumonia [None]
  - Diarrhoea [None]
